FAERS Safety Report 12690427 (Version 1)
Quarter: 2016Q3

REPORT INFORMATION
  Report Type: Spontaneous
  Country: None (occurrence: US)
  Receive Date: 20160826
  Receipt Date: 20160826
  Transmission Date: 20161109
  Serious: Yes (Hospitalization)
  Sender: FDA-Public Use
  Company Number: US-RARE DISEASE THERAPEUTICS, INC.-1056781

PATIENT
  Age: 10 Year
  Sex: Male
  Weight: 50.3 kg

DRUGS (18)
  1. PURIXAN [Suspect]
     Active Substance: MERCAPTOPURINE
     Indication: NON-HODGKIN^S LYMPHOMA
     Route: 048
     Dates: start: 20160722
  2. MIRALAX [Concomitant]
     Active Substance: POLYETHYLENE GLYCOL 3350
  3. DILAUDID [Concomitant]
     Active Substance: HYDROMORPHONE HYDROCHLORIDE
  4. NYSTATIN. [Concomitant]
     Active Substance: NYSTATIN
  5. METHOTREXATE SODIUM. [Concomitant]
     Active Substance: METHOTREXATE SODIUM
  6. ONCASPAR [Suspect]
     Active Substance: PEGASPARGASE
  7. DAUNORUBICIN HYDROCHLORIDE. [Concomitant]
     Active Substance: DAUNORUBICIN HYDROCHLORIDE
  8. SMX/TMP (SUFAMETHOXAZOLE, TRIMETHOPRIM) [Concomitant]
  9. ZYRTEC [Concomitant]
     Active Substance: CETIRIZINE HYDROCHLORIDE
  10. ZOFRAN [Concomitant]
     Active Substance: ONDANSETRON HYDROCHLORIDE
  11. LORAZEPAM. [Concomitant]
     Active Substance: LORAZEPAM
  12. DOCUSATE [Concomitant]
     Active Substance: DOCUSATE
  13. VERAMYST [Concomitant]
     Active Substance: FLUTICASONE FUROATE
  14. PEPCID [Concomitant]
     Active Substance: FAMOTIDINE
  15. VINCRISTINE SULFATE. [Concomitant]
     Active Substance: VINCRISTINE SULFATE
  16. PERIDEX [Concomitant]
     Active Substance: CHLORHEXIDINE GLUCONATE
  17. CYCLOSPORINE. [Concomitant]
     Active Substance: CYCLOSPORINE
  18. DEXAMETHASONE. [Concomitant]
     Active Substance: DEXAMETHASONE

REACTIONS (2)
  - Pyrexia [Recovered/Resolved]
  - Blood count abnormal [Recovered/Resolved]

NARRATIVE: CASE EVENT DATE: 20160730
